FAERS Safety Report 21211878 (Version 1)
Quarter: 2022Q3

REPORT INFORMATION
  Report Type: Spontaneous
  Country: US (occurrence: None)
  Receive Date: 20220812
  Receipt Date: 20220812
  Transmission Date: 20221027
  Serious: Yes (Hospitalization)
  Sender: FDA-Public Use
  Company Number: None

PATIENT
  Age: 76 Year
  Sex: Male
  Weight: 65.32 kg

DRUGS (1)
  1. ZOLEDRONIC [Suspect]
     Active Substance: ZOLEDRONIC ACID
     Indication: Osteoporosis
     Dosage: FREQUENCY : ONCE;?
     Route: 042
     Dates: start: 20210408, end: 20220421

REACTIONS (4)
  - Acute kidney injury [None]
  - Dialysis [None]
  - Abdominal pain [None]
  - Melaena [None]

NARRATIVE: CASE EVENT DATE: 20220512
